FAERS Safety Report 7465429-6 (Version None)
Quarter: 2011Q2

REPORT INFORMATION
  Report Type: 
  Country: None (occurrence: None)
  Receive Date: 20110509
  Receipt Date: 20110503
  Transmission Date: 20111010
  Serious: No
  Sender: FDA-Public Use
  Company Number: FR-GENZYME-CLOF-1001508

PATIENT
  Sex: Male
  Weight: 31 kg

DRUGS (5)
  1. EVOLTRA [Suspect]
     Indication: ACUTE LYMPHOCYTIC LEUKAEMIA
     Dosage: 40 MG/M2, QD DAYS 1 TO 5
     Route: 042
     Dates: start: 20110131, end: 20110204
  2. ETOPOSIDE [Suspect]
     Indication: ACUTE LYMPHOCYTIC LEUKAEMIA
     Dosage: 100 MG/M2, DAYS 1 TO 5
     Route: 065
     Dates: start: 20110131, end: 20110204
  3. CYCLOPHOSPHAMIDE [Suspect]
     Indication: ACUTE LYMPHOCYTIC LEUKAEMIA
     Dosage: 440 MG/M2, DAYS 1 TO 5
     Route: 065
     Dates: start: 20110131, end: 20110204
  4. UROMITEXAN [Concomitant]
     Indication: PROPHYLAXIS
     Dosage: 660 MG, QD
     Dates: start: 20110131, end: 20110205
  5. BACTRIM [Concomitant]
     Indication: PROPHYLAXIS
     Dosage: 800 MG, 3X/W
     Dates: start: 20110131

REACTIONS (5)
  - OCULAR MYASTHENIA [None]
  - VOMITING [None]
  - MYALGIA [None]
  - GASTROINTESTINAL TOXICITY [None]
  - GENERALISED ERYTHEMA [None]
